FAERS Safety Report 7577420-X (Version None)
Quarter: 2011Q2

REPORT INFORMATION
  Report Type: 
  Country: None (occurrence: None)
  Receive Date: 20110628
  Receipt Date: 20090216
  Transmission Date: 20111010
  Serious: Yes (Death, Other)
  Sender: FDA-Public Use
  Company Number: US-BAYER-200913500NA

PATIENT
  Sex: Male
  Weight: 91 kg

DRUGS (20)
  1. VERSED [Concomitant]
     Dosage: 13 MG
     Route: 042
     Dates: start: 20070301, end: 20070301
  2. HEPARIN [Concomitant]
     Dosage: 30,000 UNITS
     Route: 042
     Dates: start: 20070301, end: 20070301
  3. NITROGLYCERIN [Concomitant]
     Dosage: UNK
     Route: 042
     Dates: start: 20070301
  4. BUMEX [Concomitant]
     Dosage: UNK
     Route: 042
     Dates: start: 20070304, end: 20070306
  5. HYDROCHLOROTHIAZIDE [Concomitant]
     Dosage: 25 MG, QD
     Route: 048
  6. VERPAMIL HCL [Concomitant]
     Dosage: 5 MG
     Route: 042
     Dates: start: 20070301, end: 20070301
  7. INSULIN [Concomitant]
     Dosage: 10 UNITS
     Route: 042
     Dates: start: 20070301
  8. LISINOPRIL [Concomitant]
     Dosage: 40 MG, QD
     Route: 048
  9. ACETYLSALICYLIC ACID SRT [Concomitant]
     Dosage: 81 MG, QD
     Route: 048
  10. SIMVASTATIN [Concomitant]
     Dosage: 20 MG, QD
     Route: 048
  11. TERAZOSIN HCL [Concomitant]
     Dosage: 2 MG, QD
     Route: 048
  12. AMIODARONE HCL [Concomitant]
     Dosage: UNK
     Route: 042
     Dates: start: 20070301, end: 20070301
  13. FENTANYL [Concomitant]
     Dosage: UNK
     Route: 042
     Dates: start: 20070301, end: 20070301
  14. MAGNESIUM SULFATE [Concomitant]
     Dosage: UNK
     Route: 042
     Dates: start: 20070301
  15. METOPROLOL TARTRATE [Concomitant]
     Dosage: 25 MG, BID
     Route: 048
  16. FELODIPINE [Concomitant]
     Dosage: 10 MG, QD
     Route: 048
  17. LASIX [Concomitant]
     Dosage: UNK
     Route: 042
     Dates: start: 20070301
  18. NAFCILLIN [Concomitant]
     Dosage: 1 GRAM
     Route: 042
     Dates: start: 20070301
  19. TRASYLOL [Suspect]
     Indication: AORTIC VALVE REPLACEMENT
     Dosage: 1 ML INITIAL TEST DOSE
     Route: 042
     Dates: start: 20070301, end: 20070301
  20. TRASYLOL [Suspect]
     Indication: CORONARY ARTERY BYPASS
     Dosage: 100 ML TEST DOSE
     Route: 042
     Dates: start: 20070301, end: 20070301

REACTIONS (10)
  - ANXIETY [None]
  - SEPSIS [None]
  - UNEVALUABLE EVENT [None]
  - RENAL FAILURE [None]
  - MULTI-ORGAN FAILURE [None]
  - INJURY [None]
  - DEFORMITY [None]
  - ANHEDONIA [None]
  - PAIN [None]
  - EMOTIONAL DISTRESS [None]
